FAERS Safety Report 24784200 (Version 1)
Quarter: 2024Q4

REPORT INFORMATION
  Report Type: Spontaneous
  Country: US (occurrence: None)
  Receive Date: 20241227
  Receipt Date: 20241227
  Transmission Date: 20250114
  Serious: Yes (unspecified)
  Sender: Public
  Company Number: None

PATIENT
  Age: 76 Year
  Sex: Female

DRUGS (4)
  1. CARVYKTI [Suspect]
     Active Substance: CILTACABTAGENE AUTOLEUCEL
     Dates: start: 20241119, end: 20241119
  2. N/A [Concomitant]
     Active Substance: UNSPECIFIED INGREDIENT
  3. N/A [Concomitant]
     Active Substance: UNSPECIFIED INGREDIENT
  4. N/A [Concomitant]
     Active Substance: UNSPECIFIED INGREDIENT

REACTIONS (5)
  - Lymphocyte adoptive therapy [None]
  - Haemophagocytic lymphohistiocytosis [None]
  - Haemophagocytic lymphohistiocytosis [None]
  - Disseminated intravascular coagulation [None]
  - Platelet transfusion [None]

NARRATIVE: CASE EVENT DATE: 20241129
